FAERS Safety Report 7554105-7 (Version None)
Quarter: 2011Q2

REPORT INFORMATION
  Report Type: 
  Country: None (occurrence: None)
  Receive Date: 20110614
  Receipt Date: 20110614
  Transmission Date: 20111010
  Serious: Yes (Other)
  Sender: FDA-Public Use
  Company Number: None

PATIENT
  Sex: Female
  Weight: 81.6475 kg

DRUGS (1)
  1. MIRENA [Suspect]
     Indication: CONTRACEPTION
     Dosage: EVERY DAY INTRA-UTERINE
     Route: 015
     Dates: start: 20060501, end: 20110603

REACTIONS (1)
  - SMEAR CERVIX ABNORMAL [None]
